FAERS Safety Report 9915845 (Version 1)
Quarter: 2014Q1

REPORT INFORMATION
  Report Type: Spontaneous
  Country: FR (occurrence: None)
  Receive Date: 20140218
  Receipt Date: 20140218
  Transmission Date: 20141002
  Serious: Yes (Hospitalization)
  Sender: FDA-Public Use
  Company Number: 7268884

PATIENT
  Age: 72 Year
  Sex: Female

DRUGS (9)
  1. PREVISCAN [Suspect]
     Indication: PROPHYLAXIS
     Dosage: (ALTERNATING 3/4 AND 1 TAB), LONG TERM
     Route: 048
  2. LEVOTHYROX [Suspect]
     Indication: HYPOTHYROIDISM
     Dosage: LONG TERM
     Route: 048
  3. ESIDREX [Concomitant]
  4. BISOPROLOL (BISOPROLOL) (BISOPROLOL) [Concomitant]
  5. MOPRAL /00661201/ (OMEPRAZOLE) (OMEPRAZOLE) [Concomitant]
  6. VASTEN /00880402/ (PRAVASTATIN SODIUM) (PRAVASTATIN SODIUM) [Concomitant]
  7. DOLIPRANE (DOLIPRANE) (DOLIPRANE) [Concomitant]
  8. XANAX (ALPRAZOLAM) (ALPRAZOLAM) [Concomitant]
  9. ARIMIDEX (ANASTROZOLE) (ANASTROZOLE) [Concomitant]

REACTIONS (2)
  - Rectal haemorrhage [None]
  - Drug interaction [None]
